FAERS Safety Report 5450259-7 (Version None)
Quarter: 2007Q3

REPORT INFORMATION
  Report Type: 
  Country: None (occurrence: None)
  Receive Date: 20070912
  Receipt Date: 20070831
  Transmission Date: 20080115
  Serious: Yes (Other)
  Sender: FDA-Public Use
  Company Number: US-PFIZER INC-2007036654

PATIENT
  Sex: Male
  Weight: 98.4 kg

DRUGS (10)
  1. EXUBERA [Suspect]
     Indication: DIABETES MELLITUS
     Route: 055
     Dates: start: 20070207, end: 20070226
  2. BYETTA [Concomitant]
  3. VIAGRA [Concomitant]
  4. LEVITRA [Concomitant]
  5. CIALIS [Concomitant]
  6. AVANDAMET [Concomitant]
     Dosage: TEXT:4/1000
  7. ACCURETIC [Concomitant]
     Dosage: TEXT:20/12.5
  8. GLUCOTROL XL [Concomitant]
     Dosage: DAILY DOSE:10MG
  9. GLUCOPHAGE [Concomitant]
  10. AVANDIA [Concomitant]

REACTIONS (10)
  - BLOOD GLUCOSE INCREASED [None]
  - BONE DISORDER [None]
  - CHEST DISCOMFORT [None]
  - DYSPNOEA [None]
  - HAEMOPTYSIS [None]
  - HEPATIC STEATOSIS [None]
  - HYPERSENSITIVITY [None]
  - LUNG INFILTRATION [None]
  - NODULE [None]
  - THYROID MASS [None]
